FAERS Safety Report 11554903 (Version 1)
Quarter: 2015Q3

REPORT INFORMATION
  Report Type: Spontaneous
  Country: US (occurrence: US)
  Receive Date: 20150925
  Receipt Date: 20150925
  Transmission Date: 20151125
  Serious: Yes (Life-Threatening, Hospitalization, Other)
  Sender: FDA-Public Use
  Company Number: US-PROCTER_AND_GAMBLE-CIO15057299

PATIENT
  Age: 59 Year
  Sex: Female

DRUGS (2)
  1. TOOTHPASTE [Suspect]
     Active Substance: UNSPECIFIED INGREDIENT
     Indication: DENTAL DISORDER PROPHYLAXIS
     Route: 048
  2. CHLORHEXIDINE MOUTHWASH, UNKNOWN [Suspect]
     Active Substance: CHLORHEXIDINE
     Dosage: UNK DOSE, 3 /DAY
     Route: 048

REACTIONS (7)
  - Aspiration [Recovered/Resolved]
  - Respiratory failure [Recovered/Resolved]
  - Pneumonia aspiration [Recovered/Resolved]
  - Oxygen saturation abnormal [Recovered/Resolved]
  - Exposure via inhalation [Unknown]
  - Cough [Recovered/Resolved]
  - Increased upper airway secretion [Recovered/Resolved]
